FAERS Safety Report 9972490 (Version 1)
Quarter: 2014Q1

REPORT INFORMATION
  Report Type: Spontaneous
  Country: US (occurrence: None)
  Receive Date: 20140305
  Receipt Date: 20140305
  Transmission Date: 20141002
  Serious: Yes (Hospitalization, Other)
  Sender: FDA-Public Use
  Company Number: None

PATIENT
  Age: 18 Year
  Sex: Male
  Weight: 65 kg

DRUGS (14)
  1. EXJADE [Suspect]
     Indication: IRON OVERLOAD
     Route: 048
  2. PENICILLIN [Concomitant]
  3. NEURONTIN [Concomitant]
  4. SINGULAIR [Concomitant]
  5. FOLIC ACID [Concomitant]
  6. CYMBALTA [Concomitant]
  7. HYDROXYUREA [Concomitant]
  8. ASPIRIN [Concomitant]
  9. CELEBREX [Concomitant]
  10. PANTOPRAZOLE [Concomitant]
  11. EXJADE [Concomitant]
  12. MIRALAX [Concomitant]
  13. SENNA [Concomitant]
  14. KETOROLAC [Concomitant]

REACTIONS (5)
  - Back pain [None]
  - Chest pain [None]
  - Constipation [None]
  - Diarrhoea [None]
  - Renal failure acute [None]
